FAERS Safety Report 21795521 (Version 3)
Quarter: 2023Q1

REPORT INFORMATION
  Report Type: Spontaneous
  Country: JP (occurrence: JP)
  Receive Date: 20221229
  Receipt Date: 20230213
  Transmission Date: 20230418
  Serious: Yes (Other)
  Sender: FDA-Public Use
  Company Number: JP-MYOVANT SCIENCES GMBH-2022MYSCI1200515

PATIENT
  Sex: Female

DRUGS (5)
  1. RELUGOLIX [Suspect]
     Active Substance: RELUGOLIX
     Indication: Uterine leiomyoma
     Dosage: 40 MILLIGRAM, QD
     Route: 048
     Dates: start: 20220323
  2. RELUGOLIX [Suspect]
     Active Substance: RELUGOLIX
     Indication: Uterine leiomyoma
  3. RELUGOLIX [Suspect]
     Active Substance: RELUGOLIX
     Indication: Uterine leiomyoma
  4. SODIUM FERROUS CITRATE [Concomitant]
     Active Substance: SODIUM FERROUS CITRATE
     Indication: Iron deficiency anaemia
     Dosage: 200 MILLIGRAM, QD
     Route: 048
     Dates: start: 20220224, end: 20220323
  5. TEPRENONE [Concomitant]
     Active Substance: TEPRENONE
     Indication: Gastritis
     Dosage: 100 MILLIGRAM, QD
     Route: 048
     Dates: start: 20220224, end: 20220323

REACTIONS (3)
  - Genital haemorrhage [Recovered/Resolved]
  - Arthralgia [Unknown]
  - Depressive symptom [Unknown]

NARRATIVE: CASE EVENT DATE: 20220101
